FAERS Safety Report 12566001 (Version 2)
Quarter: 2016Q3

REPORT INFORMATION
  Report Type: Spontaneous
  Country: DZ (occurrence: DZ)
  Receive Date: 20160718
  Receipt Date: 20160928
  Transmission Date: 20161109
  Serious: Yes (Other)
  Sender: FDA-Public Use
  Company Number: DZ-BAYER-2016-139084

PATIENT
  Age: 65 Year

DRUGS (2)
  1. STIVARGA [Suspect]
     Active Substance: REGORAFENIB
     Indication: COLORECTAL CANCER METASTATIC
     Dosage: 160 MG, QD
     Dates: start: 20160126, end: 2016
  2. STIVARGA [Suspect]
     Active Substance: REGORAFENIB
     Indication: ADENOCARCINOMA OF COLON
     Dosage: 160 MG, QD
     Dates: start: 20160807

REACTIONS (4)
  - Pulmonary embolism [None]
  - Metastases to liver [None]
  - Metastases to lymph nodes [None]
  - Metastases to lung [None]

NARRATIVE: CASE EVENT DATE: 20160630
